FAERS Safety Report 8175125-8 (Version None)
Quarter: 2012Q1

REPORT INFORMATION
  Report Type: 
  Country: None (occurrence: None)
  Receive Date: 20120227
  Receipt Date: 20120214
  Transmission Date: 20120608
  Serious: Yes (Life-Threatening, Hospitalization, Other)
  Sender: FDA-Public Use
  Company Number: AUR-APL-2010-00096

PATIENT
  Age: 65 Year
  Sex: Male
  Weight: 80 kg

DRUGS (16)
  1. CITALOPRAM HYDROBROMIDE [Suspect]
     Indication: PRODUCT USED FOR UNKNOWN INDICATION
     Dosage: 10 MG
  2. ATORVASTATIN [Concomitant]
  3. QUININE SULFATE [Concomitant]
  4. SEVOFLURANE [Concomitant]
  5. SILDENAFIL CITRATE [Concomitant]
  6. METHYLENE BLUE (METHYLTHIONINIUM CHLORIDE) [Suspect]
     Indication: SCAN PARATHYROID
     Dosage: (650 MG 1, D), INTRAVENOUS
     Route: 042
     Dates: start: 20050722, end: 20050722
  7. ATRACURIUM BESYLATE [Concomitant]
  8. CLOPIDOGREL [Concomitant]
  9. PROPOFOL [Concomitant]
  10. INSULIN (INSULIN) [Concomitant]
  11. ALUMINIUM HYDROXIDE (ALUMINIUM HYDROXIDE) [Concomitant]
  12. OMEPRAZOLE [Concomitant]
  13. REMIFENTANIL (REMIFENTANIL) [Concomitant]
  14. MORPHINE [Concomitant]
  15. ALFACLCIDOL (ALFACALCIDOL) [Concomitant]
  16. FENTANYL [Concomitant]

REACTIONS (19)
  - TOXICITY TO VARIOUS AGENTS [None]
  - HYPERTHERMIA MALIGNANT [None]
  - SEROTONIN SYNDROME [None]
  - DRUG INTERACTION [None]
  - CHILLS [None]
  - AGITATION [None]
  - VOMITING [None]
  - HYPERPYREXIA [None]
  - HYPERTENSION [None]
  - HYPERCAPNIA [None]
  - ACIDOSIS [None]
  - PO2 DECREASED [None]
  - DEPRESSED LEVEL OF CONSCIOUSNESS [None]
  - TREMOR [None]
  - LOWER RESPIRATORY TRACT INFECTION [None]
  - ENCEPHALOPATHY [None]
  - DISORIENTATION [None]
  - HYPERKALAEMIA [None]
  - HYPERHIDROSIS [None]
